FAERS Safety Report 19119802 (Version 2)
Quarter: 2021Q2

REPORT INFORMATION
  Report Type: Other
  Country: NL (occurrence: NL)
  Receive Date: 20210412
  Receipt Date: 20210422
  Transmission Date: 20210717
  Serious: Yes (Hospitalization)
  Sender: FDA-Public Use
  Company Number: NL-ROCHE-2808026

PATIENT
  Age: 72 Year
  Sex: Male

DRUGS (4)
  1. CYCLOPHOSPHAMIDE. [Suspect]
     Active Substance: CYCLOPHOSPHAMIDE
     Indication: CHRONIC LYMPHOCYTIC LEUKAEMIA
     Route: 065
  2. RITUXIMAB. [Suspect]
     Active Substance: RITUXIMAB
     Indication: CHRONIC LYMPHOCYTIC LEUKAEMIA
     Route: 065
  3. FLUDARABINE PHOSPHATE. [Suspect]
     Active Substance: FLUDARABINE PHOSPHATE
     Indication: CHRONIC LYMPHOCYTIC LEUKAEMIA
     Route: 065
  4. CHLORAMBUCIL [Concomitant]
     Active Substance: CHLORAMBUCIL
     Indication: B-CELL SMALL LYMPHOCYTIC LYMPHOMA

REACTIONS (5)
  - Bradycardia [Recovered/Resolved]
  - Malaise [Recovered/Resolved]
  - Acute kidney injury [Recovered/Resolved]
  - Hypotension [Recovered/Resolved]
  - Tumour lysis syndrome [Recovering/Resolving]
